FAERS Safety Report 4307821-4 (Version None)
Quarter: 2004Q1

REPORT INFORMATION
  Report Type: 
  Country: None (occurrence: None)
  Receive Date: 20040225
  Receipt Date: 20030314
  Transmission Date: 20041129
  Serious: Yes (Disabling)
  Sender: FDA-Public Use
  Company Number: WAES 0303USA01654

PATIENT
  Age: 71 Year
  Sex: Female

DRUGS (7)
  1. ZOCOR [Suspect]
     Dosage: 20 MG/DAILY/PO
     Route: 048
     Dates: start: 19960101, end: 20020430
  2. TOPROL-XL [Concomitant]
  3. ASPIRIN [Concomitant]
  4. CALCIUM (UNSPECIFIED (+) VITAMINS [Concomitant]
  5. DILITIAZEM HYDROCHLORIDE [Concomitant]
  6. FOLIC ACID [Concomitant]
  7. VITAMIN E [Concomitant]

REACTIONS (2)
  - MUSCULAR WEAKNESS [None]
  - MYALGIA [None]
